FAERS Safety Report 7672744-X (Version None)
Quarter: 2011Q3

REPORT INFORMATION
  Report Type: 
  Country: None (occurrence: None)
  Receive Date: 20110804
  Receipt Date: 20110720
  Transmission Date: 20111222
  Serious: Yes (Other)
  Sender: FDA-Public Use
  Company Number: JP-2011-11185

PATIENT
  Age: 75 Year
  Sex: Male

DRUGS (1)
  1. PLETAL [Suspect]
     Dosage: ,ORAL
     Route: 048
     Dates: start: 20100301, end: 20100501

REACTIONS (1)
  - LIVER DISORDER [None]
